FAERS Safety Report 8342841-4 (Version None)
Quarter: 2012Q2

REPORT INFORMATION
  Report Type: 
  Country: None (occurrence: None)
  Receive Date: 20120508
  Receipt Date: 20120502
  Transmission Date: 20120825
  Serious: No
  Sender: FDA-Public Use
  Company Number: US-PFIZER INC-2012056916

PATIENT
  Sex: Female
  Weight: 86.168 kg

DRUGS (3)
  1. LOSARTAN POTASSIUM AND HYDROCHLOROTHIAZIDE [Concomitant]
     Indication: HYPERTENSION
     Dosage: [LOSARTAN 100]/[HYDROCHLOROTHIAZIDE 12 MG], DAILY
  2. TIKOSYN [Suspect]
     Indication: ATRIAL FIBRILLATION
     Dosage: 0.5 MG, 2X/DAY
     Dates: start: 20090201, end: 20120228
  3. METFORMIN [Concomitant]
     Indication: DIABETES MELLITUS
     Dosage: 5 MG, 2X/DAY

REACTIONS (1)
  - DRUG INEFFECTIVE [None]
